FAERS Safety Report 14744897 (Version 1)
Quarter: 2018Q2

REPORT INFORMATION
  Report Type: Spontaneous
  Country: US (occurrence: US)
  Receive Date: 20180411
  Receipt Date: 20180411
  Transmission Date: 20180711
  Serious: Yes (Hospitalization, Other)
  Sender: FDA-Public Use
  Company Number: US-CIPLA LTD.-2018US14878

PATIENT

DRUGS (6)
  1. VALACYCLOVIR [Suspect]
     Active Substance: VALACYCLOVIR HYDROCHLORIDE
     Dosage: 1 G, BID, LIFELONG
     Route: 048
  2. FAMCICLOVIR. [Suspect]
     Active Substance: FAMCICLOVIR
     Indication: HERPES SIMPLEX
     Dosage: 500 MG, BID FOR 6 YEARS
     Route: 048
  3. ACYCLOVIR. [Suspect]
     Active Substance: ACYCLOVIR
     Indication: HERPES SIMPLEX
     Dosage: 10 MG/KG, Q8 H
     Route: 042
  4. FAMCICLOVIR. [Suspect]
     Active Substance: FAMCICLOVIR
     Indication: ANTIVIRAL PROPHYLAXIS
  5. VALACYCLOVIR [Suspect]
     Active Substance: VALACYCLOVIR HYDROCHLORIDE
     Indication: HERPES SIMPLEX
     Dosage: 1 G, TID
     Route: 048
  6. VALACYCLOVIR [Suspect]
     Active Substance: VALACYCLOVIR HYDROCHLORIDE
     Indication: ANTIVIRAL PROPHYLAXIS
     Dosage: 500 MG, BID FOR 6 YEARS
     Route: 048

REACTIONS (3)
  - Retinal detachment [Unknown]
  - Treatment noncompliance [Unknown]
  - Retinitis [Unknown]
